FAERS Safety Report 4879448-7 (Version None)
Quarter: 2005Q4

REPORT INFORMATION
  Report Type: 
  Country: None (occurrence: None)
  Receive Date: 20051209
  Receipt Date: 20050728
  Transmission Date: 20060501
  Serious: Yes (Hospitalization, Other)
  Sender: FDA-Public Use
  Company Number: USA-2002-0002117

PATIENT
  Age: 41 Year
  Sex: Female
  Weight: 70.3 kg

DRUGS (36)
  1. OXYCONTIN           20MG   (OXYCODONE HYDROCHLORIDE) [Suspect]
     Indication: PAIN
     Dosage: 20 MG
     Dates: start: 19971208, end: 19990301
  2. OXYCONTIN           40 MG (OXYCODONE HYDROCHLORIDE) [Suspect]
     Indication: PAIN
     Dosage: 40 MG
     Dates: start: 19990323, end: 20000501
  3. OXYCONTIN           80 MG (OXYCODONE HYDROCHLORIDE) [Suspect]
     Indication: PAIN
     Dosage: 80 MG, TID
     Dates: start: 20000501, end: 20010319
  4. OXYIR                    5 MG (OXYCODONE HYDROCHLORIDE) [Suspect]
     Indication: PAIN
     Dosage: 5 MG
  5. ZOLOFT [Suspect]
     Dosage: 50 MG, ORAL
     Route: 048
  6. ALBUTEROL [Concomitant]
  7. AMBIEN [Concomitant]
  8. AMERGE [Concomitant]
  9. BENZONATATE [Concomitant]
  10. BIAXIN [Concomitant]
  11. BUSPAR [Concomitant]
  12. CEPHALEXIN [Concomitant]
  13. CLONAZEPAM [Concomitant]
  14. VALIUM [Concomitant]
  15. DOXEPIN HYDROCHLORIDE [Concomitant]
  16. EFFEXOR [Concomitant]
  17. FLOVENT [Concomitant]
  18. FLOXIN [Concomitant]
  19. ACETAMINOPHEN AND HYDROCODONE BITARTRATE [Concomitant]
  20. IMITREX [Concomitant]
  21. LEVAQUIN [Concomitant]
  22. MEDROXYPROGESTERONE [Concomitant]
  23. NEURONTIN [Concomitant]
  24. PAXIL [Concomitant]
  25. PREDNISONE [Concomitant]
  26. PROMETHAZINE [Concomitant]
  27. PROTUSS-DM [Concomitant]
  28. ROXICET [Concomitant]
  29. ROXICODONE [Concomitant]
  30. SERZONE [Concomitant]
  31. SONATA [Concomitant]
  32. TRAZODONE [Concomitant]
  33. REMERON [Concomitant]
  34. WELLBUTRIN [Concomitant]
  35. DOXYCYCLINE [Concomitant]
  36. KETOPROFEN [Concomitant]

REACTIONS (48)
  - ABDOMINAL DISCOMFORT [None]
  - ABDOMINAL DISTENSION [None]
  - ANXIETY [None]
  - ASTHENIA [None]
  - BACK PAIN [None]
  - BRONCHITIS [None]
  - CHILLS [None]
  - COORDINATION ABNORMAL [None]
  - CRYING [None]
  - DELUSION [None]
  - DEPRESSION [None]
  - DIFFICULTY IN WALKING [None]
  - DISCOMFORT [None]
  - DIZZINESS [None]
  - DRUG ABUSER [None]
  - DRUG DEPENDENCE [None]
  - DRUG INEFFECTIVE [None]
  - DRUG INTERACTION [None]
  - DRUG TOLERANCE [None]
  - DRUG WITHDRAWAL CONVULSIONS [None]
  - DRUG WITHDRAWAL SYNDROME [None]
  - DYSPNOEA [None]
  - DYSURIA [None]
  - FATIGUE [None]
  - HALLUCINATION, AUDITORY [None]
  - HICCUPS [None]
  - HYPERHIDROSIS [None]
  - INADEQUATE ANALGESIA [None]
  - INSOMNIA [None]
  - INTENTIONAL DRUG MISUSE [None]
  - MALAISE [None]
  - MENTAL DISORDER [None]
  - MUSCLE SPASMS [None]
  - NAUSEA [None]
  - NIGHTMARE [None]
  - PAIN [None]
  - PALPITATIONS [None]
  - PANIC REACTION [None]
  - PNEUMONIA [None]
  - RASH [None]
  - ROAD TRAFFIC ACCIDENT [None]
  - SKIN LESION [None]
  - SUICIDAL IDEATION [None]
  - TINNITUS [None]
  - UPPER RESPIRATORY TRACT INFECTION [None]
  - URINARY TRACT INFECTION [None]
  - VISUAL DISTURBANCE [None]
  - VOMITING [None]
